FAERS Safety Report 5789477-7 (Version None)
Quarter: 2008Q2

REPORT INFORMATION
  Report Type: 
  Country: None (occurrence: None)
  Receive Date: 20080626
  Receipt Date: 20080623
  Transmission Date: 20081010
  Serious: Yes (Hospitalization)
  Sender: FDA-Public Use
  Company Number: NL-TEVA-173346ISR

PATIENT
  Age: 73 Year
  Sex: Male

DRUGS (3)
  1. CLARITHROMYCIN [Suspect]
     Indication: PNEUMONIA
  2. COLCHICINE [Interacting]
     Indication: GOUTY ARTHRITIS
  3. SIMVASTATIN [Concomitant]

REACTIONS (4)
  - AXONAL NEUROPATHY [None]
  - DRUG INTERACTION [None]
  - DRUG TOXICITY [None]
  - NEUROMYOPATHY [None]
